FAERS Safety Report 26149113 (Version 1)
Quarter: 2025Q4

REPORT INFORMATION
  Report Type: Spontaneous
  Country: EU (occurrence: EU)
  Receive Date: 20251212
  Receipt Date: 20251212
  Transmission Date: 20260118
  Serious: Yes (Hospitalization)
  Sender: RANBAXY
  Company Number: EU-MINISAL02-1056218

PATIENT
  Age: 91 Year
  Sex: Male
  Weight: 63 kg

DRUGS (1)
  1. ACYCLOVIR [Suspect]
     Active Substance: ACYCLOVIR
     Indication: Herpes zoster
     Dosage: 800 MILLIGRAM, 1 TABLET EVERY 5 HOURS
     Route: 048
     Dates: start: 20250715, end: 20250723

REACTIONS (1)
  - Pancytopenia [Recovered/Resolved]

NARRATIVE: CASE EVENT DATE: 20250720
